FAERS Safety Report 19176149 (Version 2)
Quarter: 2021Q2

REPORT INFORMATION
  Report Type: Report from Study
  Country: None (occurrence: US)
  Receive Date: 20210423
  Receipt Date: 20210427
  Transmission Date: 20210717
  Serious: Yes (Hospitalization, Other)
  Sender: FDA-Public Use
  Company Number: US-ABBVIE-21K-163-3843080-00

PATIENT
  Sex: Female
  Weight: 59.02 kg

DRUGS (10)
  1. METHOTREXATE. [Concomitant]
     Active Substance: METHOTREXATE
     Indication: RHEUMATOID ARTHRITIS
  2. HYDROCHLOROTHIAZIDE. [Concomitant]
     Active Substance: HYDROCHLOROTHIAZIDE
     Indication: BLOOD PRESSURE MEASUREMENT
  3. ATROPINE. [Concomitant]
     Active Substance: ATROPINE
     Indication: EYE DISORDER
  4. COVID?19 VACCINE NOS. [Concomitant]
     Active Substance: COVID-19 VACCINE NOS
     Indication: COVID-19 IMMUNISATION
     Dosage: PFIZER
     Route: 030
     Dates: start: 202102, end: 202102
  5. ATORVASTATIN [Concomitant]
     Active Substance: ATORVASTATIN
     Indication: BLOOD CHOLESTEROL
  6. LOSARTAN. [Concomitant]
     Active Substance: LOSARTAN
     Indication: BLOOD PRESSURE MEASUREMENT
  7. HUMIRA [Suspect]
     Active Substance: ADALIMUMAB
     Indication: RHEUMATOID ARTHRITIS
     Route: 058
     Dates: start: 2012
  8. FOLIC ACID. [Concomitant]
     Active Substance: FOLIC ACID
     Indication: VITAMIN SUPPLEMENTATION
  9. PREDNISOLONE ACETATE. [Concomitant]
     Active Substance: PREDNISOLONE ACETATE
     Indication: EYE DISORDER
  10. COVID?19 VACCINE NOS. [Concomitant]
     Active Substance: COVID-19 VACCINE NOS
     Dosage: PFIZER
     Route: 030
     Dates: start: 202103, end: 202103

REACTIONS (5)
  - Joint swelling [Not Recovered/Not Resolved]
  - Skeletal injury [Recovered/Resolved]
  - Arthralgia [Not Recovered/Not Resolved]
  - Vitreous disorder [Not Recovered/Not Resolved]
  - Cataract [Not Recovered/Not Resolved]

NARRATIVE: CASE EVENT DATE: 2017
